FAERS Safety Report 16716815 (Version 1)
Quarter: 2019Q3

REPORT INFORMATION
  Report Type: Spontaneous
  Country: CA (occurrence: CA)
  Receive Date: 20190819
  Receipt Date: 20190819
  Transmission Date: 20191005
  Serious: Yes (Other)
  Sender: FDA-Public Use
  Company Number: CA-TEVA-2019-CA-1092249

PATIENT
  Age: 65 Year
  Sex: Female

DRUGS (5)
  1. METHOTREXATE. [Concomitant]
     Active Substance: METHOTREXATE
     Route: 048
  2. CELEBREX [Suspect]
     Active Substance: CELECOXIB
     Indication: PAIN
     Route: 048
  3. HYDROXYCHLOROQUINE SULAFTE [Concomitant]
     Dosage: 400 MILLIGRAM DAILY;
  4. METHOTREXATE. [Suspect]
     Active Substance: METHOTREXATE
     Indication: PRODUCT USED FOR UNKNOWN INDICATION
     Route: 058
  5. ACETAMINOPHEN/OXYCODONE HYDROCHLORIDE/OXYCODONE TEREPHTHALATE [Concomitant]
     Active Substance: ACETAMINOPHEN\OXYCODONE HYDROCHLORIDE\OXYCODONE TEREPHTHALATE
     Indication: PAIN

REACTIONS (11)
  - Movement disorder [Unknown]
  - Swelling [Unknown]
  - Sensitivity to weather change [Unknown]
  - Arthropathy [Unknown]
  - Depression [Unknown]
  - Pain [Unknown]
  - Weight increased [Unknown]
  - Limb deformity [Unknown]
  - Tendon disorder [Unknown]
  - Arthritis [Unknown]
  - Ligament rupture [Unknown]
